FAERS Safety Report 15991263 (Version 1)
Quarter: 2019Q1

REPORT INFORMATION
  Report Type: Spontaneous
  Country: DE (occurrence: DE)
  Receive Date: 20190221
  Receipt Date: 20190221
  Transmission Date: 20190418
  Serious: Yes (Hospitalization, Other)
  Sender: FDA-Public Use
  Company Number: DE-MYLANLABS-2019M1015260

PATIENT
  Age: 9 Day
  Sex: Male
  Weight: 2.95 kg

DRUGS (2)
  1. DOXEPIN [Suspect]
     Active Substance: DOXEPIN
     Indication: PRODUCT USED FOR UNKNOWN INDICATION
     Dosage: 35 MG, DAILY
     Route: 063
  2. DOXEPIN [Suspect]
     Active Substance: DOXEPIN
     Dosage: 75 MILLIGRAM

REACTIONS (7)
  - Somnolence [Recovered/Resolved]
  - Hypotonia [Recovered/Resolved]
  - Exposure via breast milk [Recovered/Resolved]
  - Dysphagia [Recovered/Resolved]
  - Weight decreased [Recovered/Resolved]
  - Poor sucking reflex [Recovered/Resolved]
  - Vomiting [Recovered/Resolved]
